FAERS Safety Report 6299685-7 (Version None)
Quarter: 2009Q3

REPORT INFORMATION
  Report Type: 
  Country: None (occurrence: None)
  Receive Date: 20090805
  Receipt Date: 20090805
  Transmission Date: 20100115
  Serious: No
  Sender: FDA-Public Use
  Company Number: None

PATIENT
  Sex: Male
  Weight: 80.9 kg

DRUGS (4)
  1. CASODEX [Suspect]
     Dosage: 50 MG
  2. TAXOTERE [Suspect]
     Dosage: 900 MG
  3. LEUPROLIDE ACETATE [Suspect]
     Dosage: 135 MG
  4. PREDNISONE TAB [Suspect]
     Dosage: 1265 MG

REACTIONS (1)
  - LYMPHOPENIA [None]
